FAERS Safety Report 17170094 (Version 4)
Quarter: 2020Q2

REPORT INFORMATION
  Report Type: Report from Study
  Country: BR (occurrence: BR)
  Receive Date: 20191218
  Receipt Date: 20200627
  Transmission Date: 20200713
  Serious: Yes (Hospitalization, Other)
  Sender: FDA-Public Use
  Company Number: NVSC2019BR030451

PATIENT
  Age: 63 Year
  Sex: Female

DRUGS (4)
  1. COSENTYX [Suspect]
     Active Substance: SECUKINUMAB
     Dosage: 300 MG
     Route: 065
     Dates: end: 20200213
  2. COSENTYX [Suspect]
     Active Substance: SECUKINUMAB
     Indication: PSORIASIS
     Dosage: 300 MG, UNKNOWN
     Route: 058
     Dates: start: 20191028
  3. COSENTYX [Suspect]
     Active Substance: SECUKINUMAB
     Dosage: UNK
     Route: 058
     Dates: start: 20200113
  4. COSENTYX [Suspect]
     Active Substance: SECUKINUMAB
     Indication: PSORIATIC ARTHROPATHY
     Dosage: UNK (PEN)
     Route: 065
     Dates: start: 20181028

REACTIONS (35)
  - Skin wound [Unknown]
  - Skin fissures [Not Recovered/Not Resolved]
  - Tremor [Not Recovered/Not Resolved]
  - Sleep disorder [Recovering/Resolving]
  - Pyrexia [Unknown]
  - Inflammation [Not Recovered/Not Resolved]
  - Mobility decreased [Not Recovered/Not Resolved]
  - Allergy to animal [Not Recovered/Not Resolved]
  - Wound healing normal [Recovered/Resolved]
  - Infection [Unknown]
  - Nail disorder [Not Recovered/Not Resolved]
  - Palpitations [Recovering/Resolving]
  - Erysipelas [Recovered/Resolved]
  - Malaise [Recovered/Resolved]
  - Burning sensation [Unknown]
  - Erythema [Recovering/Resolving]
  - Pain in extremity [Recovering/Resolving]
  - Psoriasis [Not Recovered/Not Resolved]
  - Furuncle [Not Recovered/Not Resolved]
  - Pain [Unknown]
  - Pruritus [Recovering/Resolving]
  - Burns second degree [Recovering/Resolving]
  - Skin exfoliation [Not Recovered/Not Resolved]
  - Asthenia [Recovering/Resolving]
  - Therapeutic product effect incomplete [Not Recovered/Not Resolved]
  - Poor peripheral circulation [Unknown]
  - Dry skin [Unknown]
  - Headache [Unknown]
  - Decreased immune responsiveness [Unknown]
  - Malaise [Not Recovered/Not Resolved]
  - Macule [Recovering/Resolving]
  - Injection site erythema [Recovering/Resolving]
  - Back pain [Unknown]
  - Peripheral swelling [Not Recovered/Not Resolved]
  - Depression [Not Recovered/Not Resolved]

NARRATIVE: CASE EVENT DATE: 20191101
